FAERS Safety Report 4602932-8 (Version None)
Quarter: 2005Q1

REPORT INFORMATION
  Report Type: 
  Country: None (occurrence: None)
  Receive Date: 20050307
  Receipt Date: 20050215
  Transmission Date: 20050727
  Serious: Yes (Other)
  Sender: FDA-Public Use
  Company Number: 2005038455

PATIENT
  Age: 41 Year
  Sex: Female
  Weight: 70 kg

DRUGS (1)
  1. MINOXIDIL [Suspect]
     Indication: ALOPECIA
     Dosage: AMT, TOPICAL
     Route: 061
     Dates: start: 19970101, end: 20030101

REACTIONS (11)
  - BLOOD PROLACTIN INCREASED [None]
  - DIABETES INSIPIDUS [None]
  - DIZZINESS [None]
  - FLUID RETENTION [None]
  - HEADACHE [None]
  - MUSCLE TWITCHING [None]
  - NAUSEA [None]
  - OEDEMA [None]
  - THIRST [None]
  - VERTIGO [None]
  - VOMITING [None]
